FAERS Safety Report 6708460-8 (Version None)
Quarter: 2010Q2

REPORT INFORMATION
  Report Type: 
  Country: None (occurrence: None)
  Receive Date: 20100503
  Receipt Date: 20090305
  Transmission Date: 20101027
  Serious: No
  Sender: FDA-Public Use
  Company Number: US-ASTRAZENECA-2008UW10845

PATIENT
  Age: 78 Year
  Sex: Female
  Weight: 73.5 kg

DRUGS (21)
  1. NEXIUM [Suspect]
     Indication: GASTROOESOPHAGEAL REFLUX DISEASE
     Route: 048
  2. NEXIUM [Suspect]
     Indication: OESOPHAGITIS
     Route: 048
  3. NEXIUM [Suspect]
     Indication: HIATUS HERNIA
     Route: 048
  4. NEXIUM [Suspect]
     Indication: CHEST DISCOMFORT
     Route: 048
  5. NEXIUM [Suspect]
     Route: 048
  6. NEXIUM [Suspect]
     Route: 048
  7. NEXIUM [Suspect]
     Route: 048
  8. NEXIUM [Suspect]
     Route: 048
  9. NEXIUM [Suspect]
     Route: 048
     Dates: start: 20080903
  10. NEXIUM [Suspect]
     Route: 048
     Dates: start: 20080903
  11. NEXIUM [Suspect]
     Route: 048
     Dates: start: 20080903
  12. NEXIUM [Suspect]
     Route: 048
     Dates: start: 20080903
  13. CITRACAL [Concomitant]
     Indication: MINERAL SUPPLEMENTATION
     Dosage: 2 - 500 MG TID
  14. PEPCID [Concomitant]
  15. BENICAR [Concomitant]
     Indication: HYPERTENSION
  16. PRILOSEC [Concomitant]
     Route: 048
  17. LORAZEPAM [Concomitant]
  18. HYDROCHLOROTHIAZIDE [Concomitant]
     Indication: FLUID RETENTION
  19. THY CILLIUM [Concomitant]
  20. SIMETHICONE [Concomitant]
     Indication: FLATULENCE
  21. BEANO [Concomitant]

REACTIONS (6)
  - BLOOD PRESSURE INCREASED [None]
  - CONSTIPATION [None]
  - FLATULENCE [None]
  - GASTROOESOPHAGEAL REFLUX DISEASE [None]
  - MUSCULOSKELETAL PAIN [None]
  - OSTEOPENIA [None]
